FAERS Safety Report 8030644-X (Version None)
Quarter: 2012Q1

REPORT INFORMATION
  Report Type: 
  Country: None (occurrence: None)
  Receive Date: 20120109
  Receipt Date: 20120102
  Transmission Date: 20120608
  Serious: Yes (Hospitalization)
  Sender: FDA-Public Use
  Company Number: PHHY2012FR000676

PATIENT
  Age: 73 Year
  Sex: Female

DRUGS (5)
  1. ASPIRIN [Concomitant]
     Dosage: 75 MG, QD
     Route: 048
     Dates: start: 19980101
  2. EXELON [Suspect]
     Dosage: 1 DF, QD
     Route: 062
     Dates: start: 20080621, end: 20110203
  3. METFORMIN HCL [Concomitant]
     Dosage: 1500 MG, UNK
     Dates: start: 20050101
  4. FENOFIBRATE [Concomitant]
     Dosage: 300 MG, DAILY
     Dates: start: 19980101
  5. SERTRALINE HYDROCHLORIDE [Concomitant]
     Dosage: 50 MG DAILY
     Dates: start: 20050101

REACTIONS (5)
  - COUGH [None]
  - CARDIAC FAILURE [None]
  - PLEURAL EFFUSION [None]
  - UPPER RESPIRATORY TRACT INFECTION [None]
  - BRONCHIAL DISORDER [None]
